FAERS Safety Report 12245481 (Version 1)
Quarter: 2016Q2

REPORT INFORMATION
  Report Type: Spontaneous
  Country: ZA (occurrence: ZA)
  Receive Date: 20160407
  Receipt Date: 20160407
  Transmission Date: 20160815
  Serious: Yes (Other)
  Sender: FDA-Public Use
  Company Number: ZA-CIPLA LTD.-2016ZA03643

PATIENT

DRUGS (2)
  1. CIPLA-WARFARIN [Suspect]
     Active Substance: WARFARIN
     Dosage: 5 MG, UNK
     Route: 065
  2. ARTHREXIN [Interacting]
     Active Substance: INDOMETHACIN
     Dosage: UNK
     Route: 065

REACTIONS (2)
  - Blood disorder [Unknown]
  - Drug interaction [Unknown]
